FAERS Safety Report 9630512 (Version 2)
Quarter: 2013Q4

REPORT INFORMATION
  Report Type: Spontaneous
  Country: CA (occurrence: CA)
  Receive Date: 20131018
  Receipt Date: 20131030
  Transmission Date: 20140711
  Serious: Yes (Other)
  Sender: FDA-Public Use
  Company Number: CA-AMGEN-CANSP2013072165

PATIENT
  Age: 68 Year
  Sex: Female

DRUGS (2)
  1. XGEVA [Suspect]
     Indication: PRODUCT USED FOR UNKNOWN INDICATION
     Dosage: 120 MG, UNK
     Route: 065
     Dates: start: 20120111
  2. EXEMESTANE [Concomitant]
     Dosage: 25 MG, QD

REACTIONS (6)
  - Brain neoplasm [Not Recovered/Not Resolved]
  - Colon cancer [Not Recovered/Not Resolved]
  - Metastasis [Not Recovered/Not Resolved]
  - Breast cancer recurrent [Unknown]
  - Abdominal neoplasm [Unknown]
  - Central nervous system neoplasm [Unknown]
